FAERS Safety Report 8227847-8 (Version None)
Quarter: 2012Q1

REPORT INFORMATION
  Report Type: 
  Country: None (occurrence: None)
  Receive Date: 20120322
  Receipt Date: 20120313
  Transmission Date: 20120608
  Serious: Yes (Hospitalization)
  Sender: FDA-Public Use
  Company Number: ES-VERTEX PHARMACEUTICALS INC.-000000000000000335

PATIENT
  Sex: Female
  Weight: 64 kg

DRUGS (4)
  1. PEGASYS [Concomitant]
     Indication: HEPATITIS C
     Route: 058
     Dates: start: 20120112, end: 20120305
  2. EPREX [Concomitant]
     Indication: ANAEMIA
     Route: 058
     Dates: start: 20120210, end: 20120302
  3. TELAPREVIR [Suspect]
     Indication: HEPATITIS C
     Dosage: DOSAGE FORM: TABLET
     Route: 048
     Dates: start: 20120112, end: 20120305
  4. COPEGUS [Concomitant]
     Indication: HEPATITIS C
     Dates: start: 20120112, end: 20120305

REACTIONS (1)
  - RASH [None]
